FAERS Safety Report 4738374-4 (Version None)
Quarter: 2005Q3

REPORT INFORMATION
  Report Type: 
  Country: None (occurrence: None)
  Receive Date: 20050809
  Receipt Date: 20050721
  Transmission Date: 20060218
  Serious: Yes (Hospitalization, Other)
  Sender: FDA-Public Use
  Company Number: US-GLAXOSMITHKLINE-A0567175A

PATIENT
  Age: 44 Year
  Sex: Female
  Weight: 140.9 kg

DRUGS (2)
  1. ANCEF [Suspect]
     Indication: SKIN INFECTION
     Route: 042
     Dates: start: 20040325, end: 20040325
  2. SYNTHROID [Concomitant]

REACTIONS (1)
  - URTICARIA [None]
